FAERS Safety Report 17165726 (Version 4)
Quarter: 2020Q1

REPORT INFORMATION
  Report Type: Spontaneous
  Country: US (occurrence: US)
  Receive Date: 20191217
  Receipt Date: 20200227
  Transmission Date: 20200409
  Serious: Yes (Other)
  Sender: FDA-Public Use
  Company Number: US-PFIZER INC-2019405020

PATIENT
  Age: 48 Year
  Sex: Male
  Weight: 78.47 kg

DRUGS (10)
  1. ALPRAZOLAM. [Concomitant]
     Active Substance: ALPRAZOLAM
     Dosage: 3 MG, DAILY (THREE 1 MG A DAY)
     Dates: start: 2009
  2. TRAMADOL. [Concomitant]
     Active Substance: TRAMADOL
     Dosage: 100 MG, 3X/DAY (TWO THREE TIMES PER DAY)
     Dates: start: 2009
  3. PREGABALIN. [Suspect]
     Active Substance: PREGABALIN
     Dosage: 150 MG, DAILY
     Route: 048
  4. LYRICA [Suspect]
     Active Substance: PREGABALIN
     Indication: HYPOAESTHESIA
     Dosage: 150 MG, DAILY
     Route: 048
     Dates: start: 2009
  5. LYRICA [Suspect]
     Active Substance: PREGABALIN
     Dosage: 150 MG, 1X/DAY
     Route: 048
     Dates: start: 201009
  6. PREGABALIN. [Suspect]
     Active Substance: PREGABALIN
     Dosage: 1 DF, DAILY
  7. MELOXICAM. [Concomitant]
     Active Substance: MELOXICAM
     Dosage: UNK  2X/DAY (7.5 UNIT NOT SPECFIED)
     Dates: start: 201911
  8. LYRICA [Suspect]
     Active Substance: PREGABALIN
     Indication: BRAIN INJURY
     Dosage: 150 MG, 1X/DAY
     Route: 048
     Dates: start: 2009
  9. ALPRAZOLAM. [Concomitant]
     Active Substance: ALPRAZOLAM
     Dosage: UNK
     Dates: start: 201009
  10. TRAMADOL. [Concomitant]
     Active Substance: TRAMADOL
     Dosage: UNK
     Dates: start: 201009

REACTIONS (4)
  - Off label use [Unknown]
  - Upper limb fracture [Not Recovered/Not Resolved]
  - Product use in unapproved indication [Unknown]
  - Hypoaesthesia [Not Recovered/Not Resolved]

NARRATIVE: CASE EVENT DATE: 2009
